FAERS Safety Report 17812048 (Version 1)
Quarter: 2020Q2

REPORT INFORMATION
  Report Type: Spontaneous
  Country: US (occurrence: US)
  Receive Date: 20200521
  Receipt Date: 20200521
  Transmission Date: 20200714
  Serious: Yes (Hospitalization)
  Sender: FDA-Public Use
  Company Number: None

PATIENT
  Age: 74 Year
  Sex: Male
  Weight: 87 kg

DRUGS (2)
  1. TAXOL [Concomitant]
     Active Substance: PACLITAXEL
     Dates: start: 20200506
  2. CARBOPLATIN. [Suspect]
     Active Substance: CARBOPLATIN
     Dates: start: 20200506

REACTIONS (7)
  - Decreased appetite [None]
  - Abdominal pain [None]
  - Asthenia [None]
  - Fall [None]
  - Enteritis [None]
  - Neutrophil count decreased [None]
  - Therapy interrupted [None]

NARRATIVE: CASE EVENT DATE: 20200509
